FAERS Safety Report 6901838-9 (Version None)
Quarter: 2010Q3

REPORT INFORMATION
  Report Type: 
  Country: None (occurrence: None)
  Receive Date: 20100803
  Receipt Date: 20080321
  Transmission Date: 20110219
  Serious: No
  Sender: FDA-Public Use
  Company Number: US-PFIZER INC-2008025188

PATIENT
  Sex: Female
  Weight: 50 kg

DRUGS (4)
  1. LYRICA [Suspect]
     Indication: NERVE COMPRESSION
     Dates: start: 20060325
  2. LIPITOR [Concomitant]
     Indication: BLOOD CHOLESTEROL INCREASED
  3. FISH OIL [Concomitant]
  4. VITAMIN TAB [Concomitant]

REACTIONS (3)
  - DIZZINESS [None]
  - UNEVALUABLE EVENT [None]
  - VERTIGO [None]
